FAERS Safety Report 20574177 (Version 1)
Quarter: 2022Q1

REPORT INFORMATION
  Report Type: Spontaneous
  Country: CH (occurrence: CH)
  Receive Date: 20220309
  Receipt Date: 20220309
  Transmission Date: 20220423
  Serious: Yes (Hospitalization)
  Sender: FDA-Public Use
  Company Number: None

PATIENT
  Age: 65 Year
  Sex: Female

DRUGS (10)
  1. SULFASALAZINE [Suspect]
     Active Substance: SULFASALAZINE
     Dosage: 500 MG
     Route: 048
     Dates: end: 20210709
  2. SULFASALAZINE [Suspect]
     Active Substance: SULFASALAZINE
     Dosage: 500 MG
  3. ASPIRIN [Concomitant]
     Active Substance: ASPIRIN
  4. ACIDUM FOLICUM HAENSELER [Concomitant]
  5. TORSEMIDE [Concomitant]
     Active Substance: TORSEMIDE
  6. NEBIVOLOL [Concomitant]
     Active Substance: NEBIVOLOL
  7. ENALAPRIL MALEATE\LERCANIDIPINE HYDROCHLORIDE [Concomitant]
     Active Substance: ENALAPRIL MALEATE\LERCANIDIPINE HYDROCHLORIDE
  8. QUININE SULFATE [Concomitant]
     Active Substance: QUININE SULFATE
  9. BUDESONIDE [Concomitant]
     Active Substance: BUDESONIDE
  10. PANTOPRAZOLE SODIUM [Concomitant]
     Active Substance: PANTOPRAZOLE SODIUM

REACTIONS (10)
  - Drug hypersensitivity [Unknown]
  - Anaphylactic reaction [Recovered/Resolved]
  - Pyrexia [Recovered/Resolved]
  - Erythema [Unknown]
  - Tachypnoea [Unknown]
  - Dyspnoea [Unknown]
  - Abdominal pain [Unknown]
  - Pulmonary oedema [Unknown]
  - Urinary tract infection [Unknown]
  - Liver disorder [Unknown]

NARRATIVE: CASE EVENT DATE: 20210709
